FAERS Safety Report 5479141-6 (Version None)
Quarter: 2007Q4

REPORT INFORMATION
  Report Type: 
  Country: None (occurrence: None)
  Receive Date: 20071008
  Receipt Date: 20071001
  Transmission Date: 20080405
  Serious: Yes (Death, Hospitalization)
  Sender: FDA-Public Use
  Company Number: PHHO2006JP08516

PATIENT
  Age: 77 Year
  Sex: Male

DRUGS (4)
  1. DIOVAN [Suspect]
     Dosage: 40MG DAILY
     Route: 048
     Dates: start: 20030218, end: 20041108
  2. BASEN [Suspect]
     Indication: DIABETES MELLITUS
     Dosage: 0.6MG DAILY
     Route: 048
     Dates: start: 20030303, end: 20041108
  3. GRAMALIL [Suspect]
     Indication: CEREBRAL INFARCTION
     Dosage: 25MG DAILY
     Route: 048
     Dates: start: 20030707, end: 20041108
  4. LAMISIL [Concomitant]
     Indication: NAIL TINEA

REACTIONS (8)
  - CEREBRAL INFARCTION [None]
  - DISORIENTATION [None]
  - ENCEPHALOPATHY [None]
  - GENERAL PHYSICAL HEALTH DETERIORATION [None]
  - ORAL INTAKE REDUCED [None]
  - PNEUMONIA [None]
  - PRODUCTIVE COUGH [None]
  - TRACHEOSTOMY [None]
